FAERS Safety Report 6925397-X (Version None)
Quarter: 2010Q3

REPORT INFORMATION
  Report Type: 
  Country: None (occurrence: None)
  Receive Date: 20100816
  Receipt Date: 20100811
  Transmission Date: 20110219
  Serious: Yes (Hospitalization, Disabling)
  Sender: FDA-Public Use
  Company Number: DE-ROCHE-592776

PATIENT
  Sex: Male
  Weight: 51 kg

DRUGS (8)
  1. BEVACIZUMAB [Suspect]
     Indication: NON-SMALL CELL LUNG CANCER
     Dosage: LAST DOSE PRIOR TO ADVERSE EVENT WAS RECEIVED ON 3 OCTOBER 2008
     Route: 042
     Dates: start: 20080507, end: 20081003
  2. ERLOTINIB HYDROCHLORIDE [Suspect]
     Indication: NON-SMALL CELL LUNG CANCER
     Dosage: LAST DOSE PRIOR TO ADVERSE EVENT WAS RECEIVED ON 3 OCTOBER 2008.
     Route: 048
     Dates: start: 20080507
  3. ENALAPRIL [Concomitant]
  4. OMEPRAZOLE [Concomitant]
  5. THEOPHYLLINE [Concomitant]
  6. MCP [Concomitant]
  7. TIOTROPIUM BROMIDE [Concomitant]
  8. FORMOTEROL [Concomitant]

REACTIONS (1)
  - BLINDNESS [None]
